FAERS Safety Report 17875163 (Version 1)
Quarter: 2020Q2

REPORT INFORMATION
  Report Type: Spontaneous
  Country: FR (occurrence: FR)
  Receive Date: 20200609
  Receipt Date: 20200609
  Transmission Date: 20200714
  Serious: Yes (Other)
  Sender: FDA-Public Use
  Company Number: FR-TEVA-2020-FR-1244648

PATIENT
  Age: 54 Year
  Sex: Female

DRUGS (2)
  1. PACLITAXEL. [Suspect]
     Active Substance: PACLITAXEL
     Indication: BREAST CANCER
     Dosage: UNKNOWN
     Route: 041
     Dates: start: 20200325, end: 20200325
  2. FERINJECT [Suspect]
     Active Substance: FERRIC CARBOXYMALTOSE
     Indication: IRON DEFICIENCY
     Dosage: UNKNOWN
     Route: 042
     Dates: start: 20200325, end: 20200325

REACTIONS (2)
  - Injection site extravasation [Recovering/Resolving]
  - Infusion site discolouration [Not Recovered/Not Resolved]

NARRATIVE: CASE EVENT DATE: 20200325
